FAERS Safety Report 14029030 (Version 1)
Quarter: 2017Q3

REPORT INFORMATION
  Report Type: Spontaneous
  Country: US (occurrence: US)
  Receive Date: 20170930
  Receipt Date: 20170930
  Transmission Date: 20171128
  Serious: No
  Sender: FDA-Public Use
  Company Number: US-SA-2017SA081713

PATIENT
  Age: 69 Year
  Sex: Female

DRUGS (13)
  1. AUBAGIO [Suspect]
     Active Substance: TERIFLUNOMIDE
     Indication: MULTIPLE SCLEROSIS
     Route: 048
  2. LYRICA [Concomitant]
     Active Substance: PREGABALIN
  3. CALCIUM D3 [Concomitant]
     Active Substance: CALCIUM\CHOLECALCIFEROL
  4. AMLODIPINE BESILATE [Concomitant]
     Active Substance: AMLODIPINE BESYLATE
  5. MODAFINIL. [Concomitant]
     Active Substance: MODAFINIL
  6. BIOTIN [Concomitant]
     Active Substance: BIOTIN
  7. METFORMIN [Concomitant]
     Active Substance: METFORMIN HYDROCHLORIDE
  8. VITAMIN B12 [Concomitant]
     Active Substance: CYANOCOBALAMIN
  9. VITAMIN D [Concomitant]
     Active Substance: CHOLECALCIFEROL
  10. ASPIRIN. [Concomitant]
     Active Substance: ASPIRIN
  11. CENTRUM SILVER [Concomitant]
     Active Substance: MINERALS\VITAMINS
  12. FISH OIL [Concomitant]
     Active Substance: FISH OIL
  13. SIMVASTATIN. [Concomitant]
     Active Substance: SIMVASTATIN

REACTIONS (6)
  - Condition aggravated [Unknown]
  - Muscle spasms [Unknown]
  - Pain in extremity [Unknown]
  - Musculoskeletal stiffness [Unknown]
  - Hypokinesia [Unknown]
  - Peripheral swelling [Unknown]

NARRATIVE: CASE EVENT DATE: 201705
